FAERS Safety Report 7079526-0 (Version None)
Quarter: 2010Q4

REPORT INFORMATION
  Report Type: 
  Country: None (occurrence: None)
  Receive Date: 20101022
  Receipt Date: 20101012
  Transmission Date: 20110411
  Serious: Yes (Death, Other)
  Sender: FDA-Public Use
  Company Number: 2010MA002728

PATIENT
  Age: 66 Year
  Sex: Male

DRUGS (3)
  1. TRAMADOL HYDROCHLORIDE [Suspect]
     Indication: ANALGESIC THERAPY
  2. FENTANYL TRANSDERMAL SYSTEM, 75 MCG/HOUR (ASALLC) [Suspect]
     Indication: ANALGESIC THERAPY
     Dosage: TDER
     Route: 062
     Dates: start: 20090217
  3. FLUOXETINE [Concomitant]

REACTIONS (4)
  - DRUG ADMINISTERED AT INAPPROPRIATE SITE [None]
  - DRUG TOXICITY [None]
  - EMPHYSEMA [None]
  - MYOCARDIAL ISCHAEMIA [None]
